FAERS Safety Report 4822813-4 (Version None)
Quarter: 2005Q4

REPORT INFORMATION
  Report Type: 
  Country: None (occurrence: None)
  Receive Date: 20051107
  Receipt Date: 20051107
  Transmission Date: 20060501
  Serious: Yes (Other)
  Sender: FDA-Public Use
  Company Number: None

PATIENT
  Age: 15 Year
  Sex: Female
  Weight: 79 kg

DRUGS (2)
  1. HYDROCODONE BITARTRATE + ACETAMINOPHEN [Suspect]
     Indication: ADENOTONSILLECTOMY
     Dosage: 15 ML PO Q 6-8 HR PRN
     Route: 048
     Dates: start: 20050105, end: 20051107
  2. HYDROCODONE BITARTRATE + ACETAMINOPHEN [Suspect]
     Indication: POSTOPERATIVE CARE
     Dosage: 15 ML PO Q 6-8 HR PRN
     Route: 048
     Dates: start: 20050105, end: 20051107

REACTIONS (2)
  - PRURITUS [None]
  - THERAPEUTIC RESPONSE UNEXPECTED WITH DRUG SUBSTITUTION [None]
